FAERS Safety Report 9070985 (Version 2)
Quarter: 2013Q3

REPORT INFORMATION
  Report Type: Report from Study
  Country: JP (occurrence: JP)
  Receive Date: 20130129
  Receipt Date: 20130723
  Transmission Date: 20140515
  Serious: No
  Sender: FDA-Public Use
  Company Number: JP-GLAXOSMITHKLINE-B0860840A

PATIENT
  Age: 70 Year
  Sex: Male

DRUGS (3)
  1. AVOLVE [Suspect]
     Indication: BENIGN PROSTATIC HYPERPLASIA
     Dosage: .5MG PER DAY
     Route: 048
     Dates: start: 20120329, end: 20120605
  2. URIEF [Concomitant]
     Route: 048
  3. UBRETID [Concomitant]
     Route: 048

REACTIONS (1)
  - Hypoaesthesia [Recovered/Resolved]
